FAERS Safety Report 21552829 (Version 7)
Quarter: 2023Q2

REPORT INFORMATION
  Report Type: Spontaneous
  Country: US (occurrence: US)
  Receive Date: 20221104
  Receipt Date: 20230429
  Transmission Date: 20230722
  Serious: Yes (Life-Threatening, Other)
  Sender: FDA-Public Use
  Company Number: US-UNITED THERAPEUTICS-UNT-2022-026456

PATIENT
  Age: 83 Year
  Sex: Female
  Weight: 58.503 kg

DRUGS (5)
  1. TYVASO [Suspect]
     Active Substance: TREPROSTINIL
     Indication: Pulmonary arterial hypertension
     Dosage: UNK
     Dates: start: 20210115
  2. TYVASO [Suspect]
     Active Substance: TREPROSTINIL
     Dosage: 72 ?G, QID
  3. TYVASO [Suspect]
     Active Substance: TREPROSTINIL
     Dosage: UNK
  4. TYVASO [Suspect]
     Active Substance: TREPROSTINIL
     Dosage: UNK
  5. SILDENAFIL CITRATE [Concomitant]
     Active Substance: SILDENAFIL CITRATE
     Indication: Product used for unknown indication
     Dosage: UNK
     Route: 065

REACTIONS (30)
  - Device malfunction [Unknown]
  - Pulmonary fibrosis [Unknown]
  - Cardiac failure chronic [Unknown]
  - Burn oral cavity [Unknown]
  - Oral discomfort [Unknown]
  - Rhinorrhoea [Unknown]
  - Epigastric discomfort [Unknown]
  - Taste disorder [Unknown]
  - Cough [Recovering/Resolving]
  - Throat irritation [Unknown]
  - Dry mouth [Not Recovered/Not Resolved]
  - Glossodynia [Unknown]
  - Lip swelling [Unknown]
  - Headache [Unknown]
  - Chills [Unknown]
  - Somnolence [Unknown]
  - Weight decreased [Unknown]
  - Flushing [Unknown]
  - Nasal congestion [Unknown]
  - Productive cough [Not Recovered/Not Resolved]
  - Sputum discoloured [Unknown]
  - Fatigue [Unknown]
  - Feeling hot [Unknown]
  - Sputum abnormal [Unknown]
  - Hyperhidrosis [Unknown]
  - Cardiac disorder [Unknown]
  - Choking sensation [Unknown]
  - Mass [Unknown]
  - Lip erythema [Unknown]
  - Dysphonia [Unknown]

NARRATIVE: CASE EVENT DATE: 20221213
